FAERS Safety Report 13384162 (Version 1)
Quarter: 2017Q1

REPORT INFORMATION
  Report Type: Spontaneous
  Country: US (occurrence: US)
  Receive Date: 20170329
  Receipt Date: 20170329
  Transmission Date: 20170429
  Serious: Yes (Hospitalization)
  Sender: FDA-Public Use
  Company Number: None

PATIENT
  Age: 59 Year
  Sex: Male
  Weight: 112.1 kg

DRUGS (1)
  1. DULOXETINE. [Suspect]
     Active Substance: DULOXETINE
     Indication: DEPRESSION
     Route: 048
     Dates: start: 20161114, end: 20161228

REACTIONS (7)
  - Arthralgia [None]
  - Dizziness [None]
  - Fall [None]
  - Head injury [None]
  - Loss of consciousness [None]
  - Lip injury [None]
  - Syncope [None]

NARRATIVE: CASE EVENT DATE: 20161228
